FAERS Safety Report 9638613 (Version 1)
Quarter: 2013Q4

REPORT INFORMATION
  Report Type: Spontaneous
  Country: US (occurrence: US)
  Receive Date: 20131022
  Receipt Date: 20131022
  Transmission Date: 20140711
  Serious: No
  Sender: FDA-Public Use
  Company Number: US-BRISTOL-MYERS SQUIBB COMPANY-19438183

PATIENT
  Age: 74 Year
  Sex: Female
  Weight: 61.68 kg

DRUGS (13)
  1. ELIQUIS [Suspect]
     Indication: ATRIAL FIBRILLATION
     Dosage: ONE DOSE IN THE MORNING, AND ONE IN THE AFTERNOON
     Dates: start: 20130821
  2. ELIQUIS [Suspect]
     Indication: BLOOD VISCOSITY INCREASED
     Dosage: ONE DOSE IN THE MORNING, AND ONE IN THE AFTERNOON
     Dates: start: 20130821
  3. METFORMIN [Concomitant]
  4. LOSARTAN [Concomitant]
  5. SPIRONOLACTONE [Concomitant]
  6. NIFEDICAL [Concomitant]
  7. GABAPENTIN [Concomitant]
  8. OMEPRAZOLE [Concomitant]
  9. IMMODIUM [Concomitant]
  10. CALCIUM + VITAMIN D [Concomitant]
     Dosage: CALCIUM + VIT D 600
  11. CENTRUM SILVER [Concomitant]
  12. HYDROCODONE [Concomitant]
     Dosage: 7.5-500 3 X A DAY
  13. MULTIVITAMIN [Concomitant]

REACTIONS (1)
  - Drug dose omission [Unknown]
